FAERS Safety Report 24388704 (Version 1)
Quarter: 2024Q4

REPORT INFORMATION
  Report Type: Spontaneous
  Country: JP (occurrence: JP)
  Receive Date: 20241002
  Receipt Date: 20241002
  Transmission Date: 20250115
  Serious: Yes (Hospitalization)
  Sender: EISAI
  Company Number: JP-Eisai-202408274_LEN-RCC_P_1

PATIENT
  Age: 44 Year
  Sex: Female

DRUGS (3)
  1. LENVIMA [Suspect]
     Active Substance: LENVATINIB
     Indication: Renal cell carcinoma
     Dosage: FREQUENCY UNKNOWN
     Route: 048
     Dates: start: 202408, end: 202409
  2. LENVIMA [Suspect]
     Active Substance: LENVATINIB
     Dosage: DOSE REDUCED (DOSE AND FREQUENCY UNKNOWN)
     Route: 048
     Dates: start: 202409, end: 202409
  3. KEYTRUDA [Suspect]
     Active Substance: PEMBROLIZUMAB
     Indication: Renal cell carcinoma
     Route: 041
     Dates: start: 202408, end: 202409

REACTIONS (3)
  - Neutropenia [Unknown]
  - Proteinuria [Unknown]
  - Myalgia [Unknown]

NARRATIVE: CASE EVENT DATE: 20240901
